FAERS Safety Report 22276009 (Version 1)
Quarter: 2023Q2

REPORT INFORMATION
  Report Type: Spontaneous
  Country: US (occurrence: None)
  Receive Date: 20230501
  Receipt Date: 20230501
  Transmission Date: 20230722
  Serious: Yes (unspecified)
  Sender: FDA-Public Use
  Company Number: None

PATIENT
  Age: 48 Year
  Sex: Male
  Weight: 110.25 kg

DRUGS (6)
  1. SUTAB [Suspect]
     Active Substance: MAGNESIUM SULFATE\POTASSIUM CHLORIDE\SODIUM SULFATE
     Indication: Bowel preparation
     Dosage: OTHER FREQUENCY : 4PM AND 9PM;?
     Route: 048
     Dates: start: 20230419, end: 20230419
  2. LISINOPRIL [Concomitant]
     Active Substance: LISINOPRIL
  3. Chlorithalidone [Concomitant]
  4. OMEPRAZOLE [Concomitant]
     Active Substance: OMEPRAZOLE
  5. BUPROPION [Concomitant]
     Active Substance: BUPROPION
  6. Psyillium Husk [Concomitant]

REACTIONS (8)
  - Chills [None]
  - Erythema [None]
  - Pruritus [None]
  - Vomiting [None]
  - Abdominal pain upper [None]
  - Arthralgia [None]
  - Dysphagia [None]
  - Ocular hyperaemia [None]

NARRATIVE: CASE EVENT DATE: 20230419
